FAERS Safety Report 9646011 (Version 1)
Quarter: 2013Q4

REPORT INFORMATION
  Report Type: Spontaneous
  Country: US (occurrence: US)
  Receive Date: 20131025
  Receipt Date: 20131025
  Transmission Date: 20140711
  Serious: Yes (Death, Other)
  Sender: FDA-Public Use
  Company Number: 2013SP003115

PATIENT
  Age: 54 Year
  Sex: Male

DRUGS (2)
  1. LATUDA [Suspect]
     Indication: SCHIZOAFFECTIVE DISORDER
     Route: 048
     Dates: start: 2013, end: 2013
  2. LATUDA [Suspect]
     Indication: SCHIZOAFFECTIVE DISORDER
     Route: 048
     Dates: start: 2013, end: 2013

REACTIONS (5)
  - Lung neoplasm malignant [Fatal]
  - Pneumonia [Unknown]
  - Blunted affect [Unknown]
  - Catatonia [Unknown]
  - Emotional poverty [Unknown]
